FAERS Safety Report 11489189 (Version 2)
Quarter: 2015Q4

REPORT INFORMATION
  Report Type: Report from Study
  Country: US (occurrence: US)
  Receive Date: 20150910
  Receipt Date: 20151009
  Transmission Date: 20160304
  Serious: Yes (Hospitalization)
  Sender: FDA-Public Use
  Company Number: US-BIOGENIDEC-2015BI120705

PATIENT
  Age: 59 Year
  Sex: Female

DRUGS (2)
  1. AVONEX [Suspect]
     Active Substance: INTERFERON BETA-1A
     Indication: MULTIPLE SCLEROSIS
     Route: 030
     Dates: start: 20130805, end: 20150901
  2. AVONEX [Suspect]
     Active Substance: INTERFERON BETA-1A
     Indication: MULTIPLE SCLEROSIS
     Route: 030
     Dates: start: 19990101, end: 20120930

REACTIONS (8)
  - Multiple sclerosis relapse [Recovered/Resolved]
  - Ankle fracture [Recovered/Resolved]
  - Arthritis infective [Recovered/Resolved]
  - Amnesia [Unknown]
  - Narcolepsy [Not Recovered/Not Resolved]
  - Localised infection [Recovered/Resolved]
  - Gait disturbance [Unknown]
  - Lower limb fracture [Recovered/Resolved]

NARRATIVE: CASE EVENT DATE: 2015
